FAERS Safety Report 25838462 (Version 2)
Quarter: 2025Q4

REPORT INFORMATION
  Report Type: Spontaneous
  Country: US (occurrence: US)
  Receive Date: 20250923
  Receipt Date: 20251008
  Transmission Date: 20260117
  Serious: Yes (Hospitalization)
  Sender: TEVA
  Company Number: US-TEVA-VS-3373744

PATIENT
  Age: 27 Year
  Sex: Female

DRUGS (5)
  1. LIDOCAINE [Suspect]
     Active Substance: LIDOCAINE
     Indication: Local anaesthesia
     Dosage: 1 CC ADMINISTERED VIA AN 18G TUOHY NEEDLE WHICH WAS INSERTED AT THE L3-L4 LEVEL
     Route: 065
  2. BUPIVACAINE [Suspect]
     Active Substance: BUPIVACAINE
     Indication: Epidural analgesia
     Dosage: 8 CC ADMINISTERED TO THE NEW EPIDURAL CATHETER
     Route: 008
  3. BUPIVACAINE [Suspect]
     Active Substance: BUPIVACAINE
     Indication: Epidural analgesia
     Dosage: 1 CC ADMINISTERED INTRATHECALLY INSTEAD OF EPIDURAL ROUTE AS ANALGESIA CATHETER ENTERED INTRATHEC...
     Route: 037
  4. SODIUM CHLORIDE [Suspect]
     Active Substance: SODIUM CHLORIDE
     Indication: Epidural analgesia
     Dosage: INSTEAD OF EPIDURAL ROUTE, THE ANALGESIA CATHETER ENTERED INTRATHECALLY
     Route: 037
  5. SODIUM CHLORIDE [Suspect]
     Active Substance: SODIUM CHLORIDE
     Indication: Epidural analgesia
     Dosage: AN ADDITIONAL 1 CC DOSE INJECTED INTRATHECALLY INSTEAD OF EPIDURAL ROUTE AS THE ANALGESIA CATHETE...
     Route: 037

REACTIONS (5)
  - Sensorimotor disorder [Recovered/Resolved]
  - Incorrect route of product administration [Unknown]
  - Complication of device insertion [Recovered/Resolved]
  - Maternal exposure during pregnancy [Unknown]
  - Live birth [Unknown]
